FAERS Safety Report 6138499-5 (Version None)
Quarter: 2009Q1

REPORT INFORMATION
  Report Type: 
  Country: None (occurrence: None)
  Receive Date: 20090331
  Receipt Date: 20090326
  Transmission Date: 20090719
  Serious: Yes (Other)
  Sender: FDA-Public Use
  Company Number: GB-BRISTOL-MYERS SQUIBB COMPANY-14543003

PATIENT
  Age: 36 Year
  Sex: Female
  Weight: 52 kg

DRUGS (3)
  1. ABILIFY [Suspect]
     Indication: BIPOLAR DISORDER
     Route: 048
  2. ABILIFY [Suspect]
     Indication: SCHIZOPHRENIA
     Route: 048
  3. SERTRALINE HCL [Suspect]
     Indication: DEPRESSION
     Route: 048

REACTIONS (2)
  - ABORTION INDUCED [None]
  - PREGNANCY [None]
